FAERS Safety Report 6662875-5 (Version None)
Quarter: 2010Q1

REPORT INFORMATION
  Report Type: 
  Country: None (occurrence: None)
  Receive Date: 20100322
  Receipt Date: 20090522
  Transmission Date: 20100710
  Serious: Yes (Other)
  Sender: FDA-Public Use
  Company Number: E & B-09-027 (09-072)

PATIENT
  Age: 37 Year
  Sex: Female

DRUGS (2)
  1. SULFAZINE EC 500 MG (QUALITEST) [Suspect]
     Indication: COLITIS ULCERATIVE
     Dosage: TWO P.O. T.I.D.
     Route: 048
     Dates: start: 20090510
  2. AZATHIORINE [Concomitant]

REACTIONS (1)
  - DRUG INEFFECTIVE [None]
